FAERS Safety Report 7639982-3 (Version None)
Quarter: 2011Q3

REPORT INFORMATION
  Report Type: 
  Country: None (occurrence: None)
  Receive Date: 20110727
  Receipt Date: 20110722
  Transmission Date: 20111222
  Serious: Yes (Other)
  Sender: FDA-Public Use
  Company Number: GB-ROCHE-791860

PATIENT
  Age: 17 Year
  Sex: Female
  Weight: 66.8 kg

DRUGS (3)
  1. MINOCYCLINE HCL [Concomitant]
     Indication: ACNE
  2. CONTRACEPTIVE IMPLANT [Concomitant]
  3. ISOTRETINOIN [Suspect]
     Indication: ACNE
     Dosage: DRUG WITHDRAWN
     Route: 048
     Dates: start: 20110511, end: 20110630

REACTIONS (6)
  - NEUTROPHIL COUNT DECREASED [None]
  - LYMPHOCYTE COUNT DECREASED [None]
  - BONE MARROW FAILURE [None]
  - WHITE BLOOD CELL COUNT DECREASED [None]
  - PLATELET COUNT DECREASED [None]
  - EOSINOPHIL COUNT DECREASED [None]
